FAERS Safety Report 4655965-X (Version None)
Quarter: 2005Q2

REPORT INFORMATION
  Report Type: 
  Country: None (occurrence: None)
  Receive Date: 20050506
  Receipt Date: 20050506
  Transmission Date: 20051028
  Serious: Yes (Hospitalization)
  Sender: FDA-Public Use
  Company Number: None

PATIENT
  Age: 37 Year
  Sex: Female
  Weight: 56.6996 kg

DRUGS (2)
  1. MAXZIDE [Suspect]
     Indication: WEIGHT CONTROL
     Dosage: 50/75 MG   DAILY
     Dates: start: 20050317, end: 20050320
  2. PHENTERMINE [Suspect]
     Indication: WEIGHT CONTROL
     Dosage: 37.5 MG   DAILY
     Dates: start: 20050317, end: 20050320

REACTIONS (1)
  - DEHYDRATION [None]
